FAERS Safety Report 5868856-3 (Version None)
Quarter: 2008Q3

REPORT INFORMATION
  Report Type: 
  Country: None (occurrence: None)
  Receive Date: 20080902
  Receipt Date: 20080902
  Transmission Date: 20090109
  Serious: Yes (Other)
  Sender: FDA-Public Use
  Company Number: None

PATIENT
  Age: 27 Year
  Sex: Female
  Weight: 103.8737 kg

DRUGS (2)
  1. CIPRO [Suspect]
     Indication: BACTERIAL INFECTION
     Dosage: 2 DAY PO
     Route: 048
     Dates: start: 19961101, end: 19961107
  2. CIPRO [Suspect]
     Indication: BACTERIAL INFECTION
     Dosage: 2 DAY PO
     Route: 048
     Dates: start: 20010805, end: 20010812

REACTIONS (3)
  - ABASIA [None]
  - PAIN [None]
  - TENDONITIS [None]
